FAERS Safety Report 5377155-8 (Version None)
Quarter: 2007Q2

REPORT INFORMATION
  Report Type: 
  Country: None (occurrence: None)
  Receive Date: 20070629
  Receipt Date: 20070629
  Transmission Date: 20071010
  Serious: Yes (Hospitalization)
  Sender: FDA-Public Use
  Company Number: None

PATIENT
  Sex: Male
  Weight: 120 kg

DRUGS (3)
  1. ZYVOX [Suspect]
     Indication: CATHETER SEPSIS
     Dosage: 600 MG TWICE DAILY PO
     Route: 048
     Dates: start: 20070502, end: 20070510
  2. ZYVOX [Suspect]
     Indication: CATHETER SEPSIS
     Dosage: 600 MG TWICE DAILY PO
     Route: 048
     Dates: start: 20070518, end: 20070521
  3. ZYVOX [Suspect]

REACTIONS (8)
  - BLOOD LACTIC ACID INCREASED [None]
  - CHILLS [None]
  - HYPOTENSION [None]
  - MOUTH ULCERATION [None]
  - NAUSEA [None]
  - PHARYNGOLARYNGEAL PAIN [None]
  - PYREXIA [None]
  - SINUS HEADACHE [None]
